FAERS Safety Report 6919270-0 (Version None)
Quarter: 2010Q3

REPORT INFORMATION
  Report Type: 
  Country: None (occurrence: None)
  Receive Date: 20100810
  Receipt Date: 20100810
  Transmission Date: 20110219
  Serious: No
  Sender: FDA-Public Use
  Company Number: None

PATIENT
  Age: 41 Year
  Sex: Female

DRUGS (2)
  1. PROVIGIL [Suspect]
     Dates: start: 20090501, end: 20100301
  2. RITALIN [Suspect]
     Dates: start: 20090601, end: 20090901

REACTIONS (2)
  - DRUG INEFFECTIVE [None]
  - HYPERSOMNIA [None]
